FAERS Safety Report 7508107-7 (Version None)
Quarter: 2011Q2

REPORT INFORMATION
  Report Type: 
  Country: None (occurrence: None)
  Receive Date: 20110527
  Receipt Date: 20110307
  Transmission Date: 20111010
  Serious: Yes (Other)
  Sender: FDA-Public Use
  Company Number: US-BAYER-201026404NA

PATIENT
  Age: 18 Year
  Sex: Female
  Weight: 88.435 kg

DRUGS (3)
  1. YASMIN [Suspect]
     Indication: HYPERTRICHOSIS
     Dosage: UNK
     Route: 048
     Dates: start: 20040101, end: 20050601
  2. YAZ [Suspect]
     Indication: PRODUCT USED FOR UNKNOWN INDICATION
     Dosage: UNK
     Route: 048
     Dates: start: 20040101
  3. TOPAMAX [Concomitant]
     Indication: MIGRAINE
     Dosage: 25 MG, BID
     Dates: start: 20050301

REACTIONS (4)
  - CEREBROVASCULAR ACCIDENT [None]
  - HEMIPARESIS [None]
  - VIITH NERVE PARALYSIS [None]
  - EYE MOVEMENT DISORDER [None]
